FAERS Safety Report 7111201-6 (Version None)
Quarter: 2010Q4

REPORT INFORMATION
  Report Type: 
  Country: None (occurrence: None)
  Receive Date: 20101112
  Receipt Date: 20101103
  Transmission Date: 20110411
  Serious: Yes (Death)
  Sender: FDA-Public Use
  Company Number: 021537

PATIENT
  Sex: Female
  Weight: 60 kg

DRUGS (6)
  1. NEUPRO [Suspect]
     Dosage: (1 MG 1X/24 HOURS)
  2. FURORESE /00032601/ [Concomitant]
  3. ASPIRIN [Concomitant]
  4. LYRICA [Concomitant]
  5. VERAPAMIL [Concomitant]
  6. LEVOTHYROXINE SODIUM [Concomitant]

REACTIONS (1)
  - DIABETES MELLITUS INADEQUATE CONTROL [None]
